FAERS Safety Report 8406366-X (Version None)
Quarter: 2012Q2

REPORT INFORMATION
  Report Type: 
  Country: None (occurrence: None)
  Receive Date: 20120604
  Receipt Date: 20120601
  Transmission Date: 20120825
  Serious: Yes (Death, Other)
  Sender: FDA-Public Use
  Company Number: PHFR2010GB00804

PATIENT
  Sex: Male

DRUGS (2)
  1. CLOZARIL [Suspect]
     Indication: SCHIZOPHRENIA
     Route: 048
     Dates: start: 20100222
  2. ANALGESICS [Suspect]
     Indication: BACK PAIN

REACTIONS (4)
  - TOXICITY TO VARIOUS AGENTS [None]
  - OVERDOSE [None]
  - ANTIPSYCHOTIC DRUG LEVEL INCREASED [None]
  - BACK PAIN [None]
